FAERS Safety Report 9562787 (Version 1)
Quarter: 2013Q3

REPORT INFORMATION
  Report Type: Spontaneous
  Country: GB (occurrence: GB)
  Receive Date: 20130927
  Receipt Date: 20130927
  Transmission Date: 20140515
  Serious: Yes (Life-Threatening, Other)
  Sender: FDA-Public Use
  Company Number: GB-BRISTOL-MYERS SQUIBB COMPANY-19438480

PATIENT
  Age: 40 Year
  Sex: Female
  Weight: 65.31 kg

DRUGS (5)
  1. ARIPIPRAZOLE [Suspect]
     Route: 048
     Dates: start: 20130812, end: 20130816
  2. CARBAMAZEPINE [Concomitant]
  3. CITALOPRAM [Concomitant]
  4. LITHIUM CARBONATE [Concomitant]
  5. OLANZAPINE [Concomitant]

REACTIONS (2)
  - Agitation [Recovered/Resolved]
  - Suicidal ideation [Recovered/Resolved]
